FAERS Safety Report 6234568-X (Version None)
Quarter: 2009Q2

REPORT INFORMATION
  Report Type: 
  Country: None (occurrence: None)
  Receive Date: 20090616
  Receipt Date: 20090616
  Transmission Date: 20091009
  Serious: Yes (Hospitalization)
  Sender: FDA-Public Use
  Company Number: None

PATIENT
  Sex: Male
  Weight: 65.5 kg

DRUGS (9)
  1. RISPERIDONE [Suspect]
     Indication: DEMENTIA
     Dosage: 0.25MG @HS
     Dates: start: 20060101
  2. CARBIDOPA-LEVO [Concomitant]
  3. BUMETANIDE [Concomitant]
  4. ASPIRIN [Concomitant]
  5. METFORMIN HCL [Concomitant]
  6. RISPERDAL [Concomitant]
  7. LOVASTATIN [Concomitant]
  8. SERTRALINE [Concomitant]
  9. TEMAZEPAM [Concomitant]

REACTIONS (1)
  - DEHYDRATION [None]
